FAERS Safety Report 5902379-8 (Version None)
Quarter: 2008Q3

REPORT INFORMATION
  Report Type: 
  Country: None (occurrence: None)
  Receive Date: 20080919
  Receipt Date: 20080711
  Transmission Date: 20090109
  Serious: No
  Sender: FDA-Public Use
  Company Number: US-WYE-H05062408

PATIENT
  Sex: Male

DRUGS (5)
  1. PRISTIQ [Suspect]
     Indication: ANXIETY
     Dosage: 50 MG 1X PER 1 DAY, ORAL
     Route: 048
     Dates: start: 20080707
  2. ETHANOL (ETHANOL) [Concomitant]
  3. NORVASC [Concomitant]
  4. TRICOR [Concomitant]
  5. XANAX [Concomitant]

REACTIONS (5)
  - ANOREXIA [None]
  - CONSTIPATION [None]
  - DRUG INEFFECTIVE [None]
  - INSOMNIA [None]
  - THINKING ABNORMAL [None]
